FAERS Safety Report 22168356 (Version 1)
Quarter: 2023Q2

REPORT INFORMATION
  Report Type: Spontaneous
  Country: None (occurrence: DE)
  Receive Date: 20230403
  Receipt Date: 20230403
  Transmission Date: 20230721
  Serious: Yes (Hospitalization, Other)
  Sender: FDA-Public Use
  Company Number: DE-B.Braun Medical Inc.-2139841

PATIENT
  Age: 33 Year
  Sex: Female
  Weight: 52 kg

DRUGS (58)
  1. HEPARIN SODIUM IN DEXTROSE [Suspect]
     Active Substance: HEPARIN SODIUM
     Indication: Thrombosis prophylaxis
  2. CLONIDINE [Suspect]
     Active Substance: CLONIDINE
  3. AMOXICILLIN\CLAVULANATE POTASSIUM [Suspect]
     Active Substance: AMOXICILLIN\CLAVULANATE POTASSIUM
  4. CLONAZEPAM [Suspect]
     Active Substance: CLONAZEPAM
  5. RANITIDINE HYDROCHLORIDE [Suspect]
     Active Substance: RANITIDINE HYDROCHLORIDE
  6. NADROPARIN CALCIUM [Suspect]
     Active Substance: NADROPARIN CALCIUM
  7. UNSPECIFIED INGREDIENT [Suspect]
     Active Substance: UNSPECIFIED INGREDIENT
  8. EGG PHOSPHOLIPIDS\GLYCERIN\SOYBEAN OIL [Suspect]
     Active Substance: EGG PHOSPHOLIPIDS\GLYCERIN\SOYBEAN OIL
  9. UNSPECIFIED INGREDIENT [Suspect]
     Active Substance: UNSPECIFIED INGREDIENT
  10. UNSPECIFIED INGREDIENT [Suspect]
     Active Substance: UNSPECIFIED INGREDIENT
  11. URSODIOL [Suspect]
     Active Substance: URSODIOL
  12. ORNITHINE ASPARTATE [Suspect]
     Active Substance: ORNITHINE ASPARTATE
  13. ACTRAPID [Suspect]
     Active Substance: INSULIN HUMAN
  14. UNSPECIFIED INGREDIENT [Suspect]
     Active Substance: UNSPECIFIED INGREDIENT
  15. LASIX [Suspect]
     Active Substance: FUROSEMIDE
  16. UNSPECIFIED INGREDIENT [Suspect]
     Active Substance: UNSPECIFIED INGREDIENT
  17. LAMICTAL [Suspect]
     Active Substance: LAMOTRIGINE
  18. CLAFORAN [Suspect]
     Active Substance: CEFOTAXIME SODIUM
  19. SULFAMETHOXAZOLE\TRIMETHOPRIM [Suspect]
     Active Substance: SULFAMETHOXAZOLE\TRIMETHOPRIM
  20. DIFLUCAN [Suspect]
     Active Substance: FLUCONAZOLE
  21. TAVOR (LORAZEPAM) [Suspect]
     Active Substance: LORAZEPAM
  22. THEOPHYLLINE [Suspect]
     Active Substance: THEOPHYLLINE
  23. LACTULOSE [Suspect]
     Active Substance: LACTULOSE
  24. UNSPECIFIED INGREDIENT [Suspect]
     Active Substance: UNSPECIFIED INGREDIENT
  25. FERRLECIT [Suspect]
     Active Substance: SODIUM FERRIC GLUCONATE COMPLEX
  26. UNSPECIFIED INGREDIENT [Suspect]
     Active Substance: UNSPECIFIED INGREDIENT
  27. SAB Simplex [Concomitant]
  28. NOREPINEPHRINE HYDROCHLORIDE, (+/-)- [Concomitant]
     Active Substance: NOREPINEPHRINE HYDROCHLORIDE, (+/-)-
  29. Atosil [Concomitant]
  30. Ferro-folsan [Concomitant]
  31. POTASSIUM CHLORIDE [Concomitant]
     Active Substance: POTASSIUM CHLORIDE
  32. CILASTATIN SODIUM\IMIPENEM [Concomitant]
     Active Substance: CILASTATIN SODIUM\IMIPENEM
  33. FENTANYL [Concomitant]
     Active Substance: FENTANYL
  34. VANCOMYCIN [Concomitant]
     Active Substance: VANCOMYCIN
  35. DOBUTAMINE HYDROCHLORIDE [Concomitant]
     Active Substance: DOBUTAMINE HYDROCHLORIDE
  36. MINERALS\PROBIOTICS NOS\VITAMINS [Concomitant]
     Active Substance: MINERALS\PROBIOTICS NOS\VITAMINS
  37. IRON [Concomitant]
     Active Substance: IRON
  38. KETAMIN [Concomitant]
     Active Substance: KETAMINE
  39. ALBUMIN HUMAN [Concomitant]
     Active Substance: ALBUMIN HUMAN
  40. PANTOZOL [Concomitant]
     Active Substance: PANTOPRAZOLE SODIUM
  41. KONAKION [Concomitant]
     Active Substance: PHYTONADIONE
  42. NYSTATIN [Concomitant]
     Active Substance: NYSTATIN
  43. HEPARIN [Concomitant]
     Active Substance: HEPARIN SODIUM
  44. PREDNISOLONE [Concomitant]
     Active Substance: PREDNISOLONE
  45. VITAMIN B1 [Concomitant]
     Active Substance: THIAMINE HYDROCHLORIDE
  46. DEXTROSE [Concomitant]
     Active Substance: DEXTROSE\DEXTROSE MONOHYDRATE
  47. SODIUM CHLORIDE [Concomitant]
     Active Substance: SODIUM CHLORIDE
  48. Paspertin [Concomitant]
  49. VITINTRA [Concomitant]
     Active Substance: ERGOCALCIFEROL\PHYTONADIONE\RETINOL\VITAMIN A PALMITATE
  50. PIRITRAMIDE [Concomitant]
     Active Substance: PIRITRAMIDE
  51. XYLOMETAZOLINE HYDROCHLORIDE [Concomitant]
     Active Substance: XYLOMETAZOLINE HYDROCHLORIDE
  52. BRICANYL [Concomitant]
     Active Substance: TERBUTALINE SULFATE
  53. VALPROIC ACID [Concomitant]
     Active Substance: VALPROIC ACID
  54. AMINO ACIDS\DEXTROSE\ELECTROLYTES NOS [Concomitant]
     Active Substance: AMINO ACIDS\DEXTROSE\ELECTROLYTES NOS
  55. AKINETON [Concomitant]
     Active Substance: BIPERIDEN HYDROCHLORIDE
  56. Clont [Concomitant]
  57. CALCIUM [Concomitant]
     Active Substance: CALCIUM
  58. Xanef [Concomitant]

REACTIONS (3)
  - Toxic epidermal necrolysis [Recovered/Resolved]
  - Sepsis [Recovered/Resolved]
  - Stevens-Johnson syndrome [Recovered/Resolved]
